FAERS Safety Report 20188733 (Version 3)
Quarter: 2021Q4

REPORT INFORMATION
  Report Type: Report from Study
  Country: KR (occurrence: KR)
  Receive Date: 20211215
  Receipt Date: 20211223
  Transmission Date: 20220303
  Serious: Yes (Death, Hospitalization, Other)
  Sender: FDA-Public Use
  Company Number: KR-BRISTOL-MYERS SQUIBB COMPANY-BMS-2021-134823

PATIENT
  Age: 77 Year
  Sex: Female

DRUGS (1)
  1. ABATACEPT [Suspect]
     Active Substance: ABATACEPT
     Indication: Rheumatoid arthritis
     Dosage: 500 MILLIGRAM, Q4WK
     Route: 042
     Dates: start: 20180411, end: 20180801

REACTIONS (2)
  - Pneumonia cryptococcal [Fatal]
  - Acute interstitial pneumonitis [Fatal]

NARRATIVE: CASE EVENT DATE: 20180816
